FAERS Safety Report 6394172-X (Version None)
Quarter: 2009Q4

REPORT INFORMATION
  Report Type: 
  Country: None (occurrence: None)
  Receive Date: 20091008
  Receipt Date: 20090930
  Transmission Date: 20100525
  Serious: Yes (Hospitalization)
  Sender: FDA-Public Use
  Company Number: JP-ABBOTT-09P-087-0600056-00

PATIENT
  Sex: Female
  Weight: 32.9 kg

DRUGS (14)
  1. HUMIRA [Suspect]
     Indication: RHEUMATOID ARTHRITIS
     Route: 058
     Dates: start: 20090430, end: 20090820
  2. METHOTREXATE [Concomitant]
     Indication: RHEUMATOID ARTHRITIS
     Route: 048
     Dates: start: 20090430, end: 20090807
  3. METHOTREXATE [Concomitant]
     Route: 048
     Dates: start: 20090809, end: 20090903
  4. METHOTREXATE [Concomitant]
     Route: 048
     Dates: start: 20090917
  5. PREDNISONE [Concomitant]
     Indication: RHEUMATOID ARTHRITIS
     Route: 048
     Dates: start: 20090430, end: 20090625
  6. PREDNISONE [Concomitant]
     Route: 048
     Dates: start: 20090626, end: 20090709
  7. PREDNISONE [Concomitant]
     Route: 048
     Dates: start: 20090710, end: 20090803
  8. PREDNISONE [Concomitant]
     Route: 048
     Dates: start: 20090804, end: 20090917
  9. PREDNISONE [Concomitant]
     Route: 048
     Dates: start: 20090918
  10. LANSOPRAZOLE [Concomitant]
     Indication: GASTROINTESTINAL DISORDER
     Route: 048
     Dates: start: 20090430
  11. ALENDRONATE SODIUM [Concomitant]
     Indication: OSTEOPOROSIS
     Route: 048
     Dates: start: 20090430
  12. FOLIC ACID [Concomitant]
     Indication: PROPHYLAXIS
     Route: 048
     Dates: start: 20090430
  13. FOLIC ACID [Concomitant]
     Indication: ADVERSE EVENT
  14. FERROUS SULFATE HYDRATE [Concomitant]
     Indication: IRON DEFICIENCY ANAEMIA
     Route: 048
     Dates: start: 20090612

REACTIONS (2)
  - GAIT DISTURBANCE [None]
  - PNEUMONIA BACTERIAL [None]
